FAERS Safety Report 5655520-9 (Version None)
Quarter: 2008Q1

REPORT INFORMATION
  Report Type: 
  Country: None (occurrence: None)
  Receive Date: 20080307
  Receipt Date: 20080225
  Transmission Date: 20080703
  Serious: Yes (Other)
  Sender: FDA-Public Use
  Company Number: CR-ROCHE-549597

PATIENT
  Age: 57 Year
  Sex: Male

DRUGS (1)
  1. XELODA [Suspect]
     Indication: DRUG USE FOR UNKNOWN INDICATION
     Route: 048
     Dates: start: 20051106, end: 20080125

REACTIONS (4)
  - DIZZINESS [None]
  - INTESTINAL OBSTRUCTION [None]
  - PYREXIA [None]
  - VOMITING [None]
